FAERS Safety Report 8896168 (Version 1)
Quarter: 2012Q4

REPORT INFORMATION
  Report Type: 
  Country: US (occurrence: US)
  Receive Date: 20121108
  Receipt Date: 20121108
  Transmission Date: 20130627
  Serious: No
  Sender: FDA-Public Use
  Company Number: US-B.I. PHARMACEUTICALS,INC./RIDGEFIELD-2012-BP-27340BP

PATIENT
  Sex: Female

DRUGS (4)
  1. PRADAXA [Suspect]
     Indication: ATRIAL FIBRILLATION
     Dosage: 300 mg
     Route: 048
     Dates: start: 201107
  2. METOPROLOL SUCC ER [Concomitant]
     Indication: CARDIAC DISORDER
     Dosage: 50 mg
     Route: 048
     Dates: start: 2011
  3. FLECAINIDE ACETATE [Concomitant]
     Indication: HYPERTENSION
     Dosage: 100 mg
     Route: 048
     Dates: start: 2011
  4. LOSARTAN-HCTZ [Concomitant]
     Indication: HYPERTENSION
     Route: 048
     Dates: start: 2011

REACTIONS (4)
  - Oesophagitis [Unknown]
  - Foreign body [Unknown]
  - Dysphagia [Unknown]
  - Limb injury [Recovered/Resolved]
